FAERS Safety Report 7442277-4 (Version None)
Quarter: 2011Q2

REPORT INFORMATION
  Report Type: 
  Country: None (occurrence: None)
  Receive Date: 20110428
  Receipt Date: 20110419
  Transmission Date: 20111010
  Serious: Yes (Hospitalization)
  Sender: FDA-Public Use
  Company Number: US-ASTRAZENECA-2011SE22980

PATIENT
  Age: 77 Year
  Sex: Female

DRUGS (4)
  1. SYMBICORT [Suspect]
     Route: 055
  2. NEXIUM [Suspect]
     Route: 048
  3. CRESTOR [Suspect]
     Route: 048
  4. ADVAIR DISKUS 100/50 [Concomitant]

REACTIONS (4)
  - BRONCHIECTASIS [None]
  - BLOOD CHOLESTEROL [None]
  - GASTROINTESTINAL DISORDER [None]
  - PRODUCTIVE COUGH [None]
